FAERS Safety Report 6638275-0 (Version None)
Quarter: 2010Q1

REPORT INFORMATION
  Report Type: 
  Country: None (occurrence: None)
  Receive Date: 20100317
  Receipt Date: 20100308
  Transmission Date: 20100710
  Serious: Yes (Other)
  Sender: FDA-Public Use
  Company Number: CA-ASTRAZENECA-2010SE10079

PATIENT
  Age: 40 Day
  Sex: Male
  Weight: 5 kg

DRUGS (2)
  1. BUPIVACAINE HYDROCHLORIDE W/EPINEPHRINE [Suspect]
     Indication: EPIDURAL ANAESTHESIA
     Route: 008
  2. SEVOFLURANE [Concomitant]

REACTIONS (5)
  - ELECTROCARDIOGRAM ST SEGMENT ELEVATION [None]
  - ELECTROCARDIOGRAM T WAVE INVERSION [None]
  - HYPOTENSION [None]
  - OXYGEN SATURATION DECREASED [None]
  - TACHYCARDIA [None]
